FAERS Safety Report 4473611-5 (Version None)
Quarter: 2004Q4

REPORT INFORMATION
  Report Type: 
  Country: None (occurrence: None)
  Receive Date: 20041013
  Receipt Date: 20041010
  Transmission Date: 20050328
  Serious: Yes (Hospitalization)
  Sender: FDA-Public Use
  Company Number: DE-MERCK-0410DEU00300

PATIENT
  Age: 47 Year
  Sex: Female

DRUGS (1)
  1. VIOXX [Suspect]
     Indication: INTERVERTEBRAL DISC DISORDER
     Route: 048
     Dates: start: 19990101

REACTIONS (1)
  - MYOCARDIAL INFARCTION [None]
